FAERS Safety Report 8779940 (Version 1)
Quarter: 2012Q4

REPORT INFORMATION
  Report Type: Spontaneous
  Country: US (occurrence: None)
  Receive Date: 20120905
  Receipt Date: 20120905
  Transmission Date: 20130627
  Serious: Yes (Life-Threatening, Other)
  Sender: FDA-Public Use
  Company Number: None

PATIENT
  Age: 63 Year
  Sex: Female
  Weight: 54.43 kg

DRUGS (1)
  1. ENBREL [Suspect]

REACTIONS (5)
  - Urinary tract infection [None]
  - Nasopharyngitis [None]
  - Cough [None]
  - Pneumonia [None]
  - Total lung capacity decreased [None]
